FAERS Safety Report 9437715 (Version 2)
Quarter: 2014Q3

REPORT INFORMATION
  Report Type: Spontaneous
  Country: US (occurrence: US)
  Receive Date: 20130802
  Receipt Date: 20140910
  Transmission Date: 20150326
  Serious: Yes (Other)
  Sender: FDA-Public Use
  Company Number: US-BAYER-2013-093498

PATIENT
  Sex: Female
  Weight: 65.76 kg

DRUGS (1)
  1. MIRENA [Suspect]
     Active Substance: LEVONORGESTREL
     Indication: CONTRACEPTION
     Dosage: 20 MCG/24HR, CONT
     Route: 015
     Dates: start: 200812, end: 2013

REACTIONS (9)
  - Anaemia [None]
  - Dizziness [None]
  - Injury [None]
  - Pain [None]
  - Anxiety [None]
  - Menorrhagia [None]
  - Stress [None]
  - Device issue [None]
  - Uterine perforation [None]

NARRATIVE: CASE EVENT DATE: 2013
